FAERS Safety Report 7030024-X (Version None)
Quarter: 2010Q4

REPORT INFORMATION
  Report Type: 
  Country: None (occurrence: None)
  Receive Date: 20101006
  Receipt Date: 20100927
  Transmission Date: 20110411
  Serious: Yes (Hospitalization, Other)
  Sender: FDA-Public Use
  Company Number: PHHO2010DE06866

PATIENT
  Sex: Male
  Weight: 71 kg

DRUGS (3)
  1. FTY 720 FTY+CAP [Suspect]
     Indication: MULTIPLE SCLEROSIS
     Dosage: 1.25MG
     Route: 048
     Dates: start: 20090216, end: 20100303
  2. FTY 720 FTY+CAP [Suspect]
     Dosage: 0.5MG
     Route: 048
     Dates: start: 20100304, end: 20100510
  3. COAL TAR [Concomitant]

REACTIONS (17)
  - ASTHENIA [None]
  - DIFFUSE LARGE B-CELL LYMPHOMA [None]
  - DIVERTICULUM INTESTINAL [None]
  - EXTRAVASATION [None]
  - FALL [None]
  - HEPATIC CYST [None]
  - HEPATOMEGALY [None]
  - LOCAL SWELLING [None]
  - LUNG DISORDER [None]
  - LYMPHADENECTOMY [None]
  - LYMPHADENOPATHY [None]
  - OSTEOARTHRITIS [None]
  - PLEURAL CALCIFICATION [None]
  - RENAL CYST [None]
  - SINUS DISORDER [None]
  - SPINAL OSTEOARTHRITIS [None]
  - WEIGHT DECREASED [None]
